FAERS Safety Report 19002345 (Version 1)
Quarter: 2021Q1

REPORT INFORMATION
  Report Type: Spontaneous
  Country: US (occurrence: US)
  Receive Date: 20210312
  Receipt Date: 20210312
  Transmission Date: 20210420
  Serious: Yes (Other)
  Sender: FDA-Public Use
  Company Number: None

PATIENT
  Age: 98 Year
  Sex: Female
  Weight: 50.3 kg

DRUGS (12)
  1. QUINAPRIL 20 MG BY MOUTH AT BEDTIME [Concomitant]
     Dates: start: 20201228, end: 20210311
  2. ROCURONIUM 100 MG IV PUSH ONCE [Concomitant]
     Dates: start: 20210311, end: 20210311
  3. ALISKIREN 150 MG BY MOUTH DAILY [Concomitant]
     Dates: start: 20201214, end: 20210311
  4. LABETALOL 10 MG IV PUSH ONCE [Concomitant]
     Dates: start: 20210311, end: 20210311
  5. FENTANYL 100 MCG IV PUSH ONCE [Concomitant]
     Dates: start: 20210311, end: 20210311
  6. TENECTEPLASE [Suspect]
     Active Substance: TENECTEPLASE
     Indication: ISCHAEMIC STROKE
     Dosage: ?          OTHER FREQUENCY:ONCE;?
     Route: 040
     Dates: start: 20210311, end: 20210311
  7. METOPROLOL ER 50 MG 1.5 TAB BY MOUTH DAILY [Concomitant]
     Dates: start: 20200608, end: 20210311
  8. FUROSEMIDE 20 MG BY MOUTH DAILY [Concomitant]
     Dates: start: 20210203, end: 20210311
  9. ASPIRIN 81 MG BY MOUTH DAILY [Concomitant]
     Dates: end: 20210311
  10. ETOMIDATE 20 MG IV PUSH ONCE [Concomitant]
     Dates: start: 20210311, end: 20210311
  11. PROPOFOL 5 MCG/KG/MIN IV INFUSION [Concomitant]
     Dates: start: 20210311, end: 20210312
  12. ANASTROZOLE 1 MG BY MOUTH DAILY [Concomitant]
     Dates: start: 20200423, end: 20210311

REACTIONS (8)
  - Oxygen saturation decreased [None]
  - Pneumothorax [None]
  - Unresponsive to stimuli [None]
  - Swelling face [None]
  - Cerebrovascular accident [None]
  - Hypertension [None]
  - Swollen tongue [None]
  - Thrombosis [None]

NARRATIVE: CASE EVENT DATE: 20210311
